FAERS Safety Report 9395885 (Version 2)
Quarter: 2013Q4

REPORT INFORMATION
  Report Type: Report from Study
  Country: GB (occurrence: GB)
  Receive Date: 20130711
  Receipt Date: 20131105
  Transmission Date: 20140711
  Serious: Yes (Other)
  Sender: FDA-Public Use
  Company Number: GB-GLAXOSMITHKLINE-B0905363A

PATIENT
  Age: 67 Year
  Sex: Female
  Weight: 90.6 kg

DRUGS (2)
  1. SERETIDE [Suspect]
     Indication: CHRONIC OBSTRUCTIVE PULMONARY DISEASE
     Dosage: 2PUFF TWICE PER DAY
     Route: 065
     Dates: start: 20120613
  2. TIOTROPIUM [Concomitant]
     Dosage: 18MCG PER DAY
     Dates: start: 20060314

REACTIONS (2)
  - Infective exacerbation of chronic obstructive airways disease [Recovered/Resolved]
  - Sputum purulent [Recovered/Resolved]
